FAERS Safety Report 21316036 (Version 1)
Quarter: 2022Q3

REPORT INFORMATION
  Report Type: Spontaneous
  Country: CN (occurrence: CN)
  Receive Date: 20220910
  Receipt Date: 20220910
  Transmission Date: 20221027
  Serious: Yes (Hospitalization, Other)
  Sender: FDA-Public Use
  Company Number: CN-009507513-2209CHN002462

PATIENT
  Age: 78 Year
  Sex: Male
  Weight: 1 kg

DRUGS (3)
  1. INVANZ [Suspect]
     Active Substance: ERTAPENEM SODIUM
     Indication: Renal cell carcinoma
     Dosage: 1 GRAM, QD, IVGTT
     Route: 042
     Dates: start: 20220708, end: 20220714
  2. INVANZ [Suspect]
     Active Substance: ERTAPENEM SODIUM
     Indication: Urinary tract infection
  3. SODIUM CHLORIDE [Concomitant]
     Active Substance: SODIUM CHLORIDE
     Indication: Renal cell carcinoma
     Dosage: STRENGTH: 0.9%, 50 MILLILITER, QD, IVGTT
     Route: 042
     Dates: start: 20220708, end: 20220714

REACTIONS (2)
  - Altered state of consciousness [Recovering/Resolving]
  - Somnolence [Recovering/Resolving]

NARRATIVE: CASE EVENT DATE: 20220709
